FAERS Safety Report 7930001 (Version 20)
Quarter: 2013Q3

REPORT INFORMATION
  Report Type: Spontaneous
  Country: US (occurrence: US)
  Receive Date: 20110504
  Receipt Date: 20130919
  Transmission Date: 20140515
  Serious: Yes (Death, Other)
  Sender: FDA-Public Use
  Company Number: PHEH2011US00473

PATIENT
  Age: 57 Year
  Sex: Female

DRUGS (6)
  1. ZOMETA [Suspect]
     Indication: METASTASES TO BONE
     Dates: end: 2010
  2. TAXOTERE [Suspect]
  3. CHEMOTHERAPEUTICS [Concomitant]
  4. FEMARA [Concomitant]
  5. TAMOXIFEN [Concomitant]
     Dosage: 10 MG, PRN
  6. METHADONE [Concomitant]

REACTIONS (131)
  - Death [Fatal]
  - Osteonecrosis of jaw [Unknown]
  - Pain [Unknown]
  - Infection [Unknown]
  - Deformity [Unknown]
  - Injury [Unknown]
  - Emotional distress [Unknown]
  - Anxiety [Unknown]
  - Physical disability [Unknown]
  - Lymphoedema [Unknown]
  - Metastases to bone [Unknown]
  - Dental discomfort [Unknown]
  - Periodontal disease [Unknown]
  - Pleural effusion [Unknown]
  - Hypoaesthesia oral [Unknown]
  - Paraesthesia oral [Unknown]
  - Metastases to lung [Unknown]
  - Lung disorder [Unknown]
  - Cardiac disorder [Unknown]
  - Tricuspid valve disease [Unknown]
  - Bone disorder [Unknown]
  - Gingival inflammation [Unknown]
  - Bone lesion [Unknown]
  - Bone swelling [Unknown]
  - Multiple sclerosis [Unknown]
  - Metastatic pain [Unknown]
  - Osteosclerosis [Unknown]
  - Atelectasis [Unknown]
  - Breast cancer in situ [Unknown]
  - Gingival swelling [Unknown]
  - Gingivitis [Unknown]
  - Metastatic neoplasm [Unknown]
  - Sinusitis [Unknown]
  - Compression fracture [Unknown]
  - Pathological fracture [Unknown]
  - Vertebral foraminal stenosis [Unknown]
  - Pneumothorax [Unknown]
  - Pericardial effusion [Unknown]
  - Pulmonary hypertension [Unknown]
  - Tricuspid valve incompetence [Unknown]
  - Major depression [Unknown]
  - Cellulitis [Unknown]
  - Abscess soft tissue [Unknown]
  - Intervertebral disc degeneration [Unknown]
  - Sciatica [Unknown]
  - Cerebrovascular accident [Unknown]
  - Intervertebral disc displacement [Unknown]
  - Spinal column stenosis [Unknown]
  - Neoplasm [Unknown]
  - Spinal cord compression [Unknown]
  - Bone marrow disorder [Unknown]
  - Panic disorder [Unknown]
  - Breast cancer [Unknown]
  - Malignant neoplasm progression [Unknown]
  - Metastases to spine [Unknown]
  - Metastases to lymph nodes [Unknown]
  - Scoliosis [Unknown]
  - Gingival pain [Unknown]
  - Glossodynia [Unknown]
  - Pain in jaw [Unknown]
  - Loose tooth [Unknown]
  - Bone loss [Unknown]
  - Renal disorder [Unknown]
  - Breast calcifications [Unknown]
  - Arthritis [Unknown]
  - Breast mass [Unknown]
  - Bloody discharge [Unknown]
  - Uterine enlargement [Unknown]
  - Phlebosclerosis [Unknown]
  - Osteolysis [Unknown]
  - Spinal disorder [Unknown]
  - Neuropathy peripheral [Unknown]
  - Exposed bone in jaw [Unknown]
  - Intervertebral disc protrusion [Unknown]
  - Hypertension [Unknown]
  - Acute respiratory failure [Unknown]
  - Anaemia [Unknown]
  - Gingival cancer [Unknown]
  - Hearing impaired [Unknown]
  - Gingival bleeding [Unknown]
  - Pulmonary arterial hypertension [Unknown]
  - Diastolic dysfunction [Unknown]
  - Claustrophobia [Unknown]
  - Adenocarcinoma [Unknown]
  - Fall [Unknown]
  - Fibrocystic breast disease [Unknown]
  - Lung infiltration [Unknown]
  - Breast haemorrhage [Unknown]
  - Skin lesion [Unknown]
  - Ecchymosis [Unknown]
  - Uterine mass [Unknown]
  - Radiculitis [Unknown]
  - Inflammation [Unknown]
  - Carpal tunnel syndrome [Unknown]
  - Hypoaesthesia [Unknown]
  - Aortic arteriosclerosis [Unknown]
  - Aortic calcification [Unknown]
  - Deep vein thrombosis [Unknown]
  - Mass [Unknown]
  - Nephrolithiasis [Unknown]
  - Nodule [Unknown]
  - Hepatic cancer [Unknown]
  - Malignant pleural effusion [Unknown]
  - Convulsion [Unknown]
  - Stomatitis [Unknown]
  - Cardiac arrest [Unknown]
  - Chronic obstructive pulmonary disease [Unknown]
  - Cachexia [Unknown]
  - Metastases to central nervous system [Unknown]
  - Renal failure acute [Unknown]
  - Weight decreased [Unknown]
  - Muscle spasms [Unknown]
  - Pain in extremity [Unknown]
  - Overweight [Unknown]
  - Musculoskeletal pain [Unknown]
  - Groin pain [Unknown]
  - Gait disturbance [Unknown]
  - Generalised oedema [Unknown]
  - Vitamin D decreased [Unknown]
  - Wheezing [Unknown]
  - Malaise [Unknown]
  - Asthenia [Unknown]
  - Back pain [Unknown]
  - Fatigue [Unknown]
  - Muscular weakness [Unknown]
  - Arthralgia [Unknown]
  - Oedema peripheral [Unknown]
  - Dyspnoea [Unknown]
  - Cough [Unknown]
  - Contusion [Unknown]
  - Lacrimation increased [Unknown]
